FAERS Safety Report 18098012 (Version 8)
Quarter: 2021Q1

REPORT INFORMATION
  Report Type: Report from Study
  Country: US (occurrence: US)
  Receive Date: 20200731
  Receipt Date: 20210202
  Transmission Date: 20210419
  Serious: Yes (Other)
  Sender: FDA-Public Use
  Company Number: NVSC2020US212991

PATIENT
  Age: 40 Year
  Sex: Female

DRUGS (3)
  1. SANDOSTATIN LAR DEPOT [Suspect]
     Active Substance: OCTREOTIDE ACETATE
     Dosage: 30 MG, Q4W(EVERY 28 DAYS)
     Route: 030
     Dates: start: 20201125
  2. SANDOSTATIN LAR DEPOT [Suspect]
     Active Substance: OCTREOTIDE ACETATE
     Dosage: 30 MG, Q4W(EVERY 28 DAYS)
     Route: 030
     Dates: start: 20201220
  3. SANDOSTATIN LAR DEPOT [Suspect]
     Active Substance: OCTREOTIDE ACETATE
     Indication: CARCINOID SYNDROME
     Dosage: 30 MG, Q4W
     Route: 030
     Dates: start: 20200508

REACTIONS (11)
  - Cellulitis [Unknown]
  - Limb discomfort [Unknown]
  - Pain in extremity [Unknown]
  - Needle issue [Unknown]
  - Product administration error [Unknown]
  - Arthralgia [Unknown]
  - Headache [Unknown]
  - Inappropriate schedule of product administration [Unknown]
  - Injection site pain [Unknown]
  - Product dose omission issue [Unknown]
  - Injection site warmth [Unknown]

NARRATIVE: CASE EVENT DATE: 20200722
